FAERS Safety Report 4596961-0 (Version None)
Quarter: 2005Q1

REPORT INFORMATION
  Report Type: 
  Country: None (occurrence: None)
  Receive Date: 20050228
  Receipt Date: 20041220
  Transmission Date: 20050727
  Serious: Yes (Other)
  Sender: FDA-Public Use
  Company Number: 2004091345

PATIENT
  Age: 46 Year
  Sex: Female

DRUGS (2)
  1. BEXTRA [Suspect]
     Indication: BACK INJURY
     Dosage: 20 MG (20 MG, 1 IN 1 D), ORAL
     Route: 048
     Dates: start: 20041019, end: 20040101
  2. FLUTICASONE PROPIONATE [Concomitant]

REACTIONS (1)
  - ERYTHEMA MULTIFORME [None]
